FAERS Safety Report 8515354-4 (Version None)
Quarter: 2012Q3

REPORT INFORMATION
  Report Type: 
  Country: None (occurrence: None)
  Receive Date: 20120717
  Receipt Date: 20120706
  Transmission Date: 20120928
  Serious: Yes (Hospitalization)
  Sender: FDA-Public Use
  Company Number: US-ELI_LILLY_AND_COMPANY-US201111006412

PATIENT
  Sex: Female

DRUGS (3)
  1. FORTEO [Suspect]
     Indication: OSTEOPOROSIS
     Dosage: 20 UG, QD
  2. CALCIUM [Concomitant]
     Dosage: UNK
  3. PRADAXA [Concomitant]
     Dosage: UNK

REACTIONS (4)
  - COMPRESSION FRACTURE [None]
  - RENAL IMPAIRMENT [None]
  - DRY MOUTH [None]
  - HEARING IMPAIRED [None]
